FAERS Safety Report 8094468-X (Version None)
Quarter: 2012Q1

REPORT INFORMATION
  Report Type: 
  Country: None (occurrence: None)
  Receive Date: 20120130
  Receipt Date: 20120117
  Transmission Date: 20120608
  Serious: Yes (Death, Hospitalization, Other)
  Sender: FDA-Public Use
  Company Number: US-ELI_LILLY_AND_COMPANY-US201011007296

PATIENT
  Sex: Female
  Weight: 58 kg

DRUGS (18)
  1. CRANBERRY [Concomitant]
  2. POTASSIUM [Concomitant]
  3. VITAMINS NOS [Concomitant]
  4. FERROUS SULFATE TAB [Concomitant]
  5. FORTEO [Suspect]
     Dosage: 20 UG, QD
  6. FORTEO [Suspect]
     Dosage: 20 UG, QD
  7. C-VITAMIN [Concomitant]
  8. FORTEO [Suspect]
     Indication: OSTEOPOROSIS
     Dosage: 20 UG, QD
     Dates: start: 20101118
  9. VITAMIN D [Concomitant]
     Dosage: UNK
  10. ASPIRIN [Concomitant]
  11. PROGESTIN INJ [Concomitant]
     Indication: BONE DISORDER
  12. FORTEO [Suspect]
     Dosage: 20 UG, QD
  13. FORTEO [Suspect]
     Dosage: 20 UG, QD
  14. MAGNESIUM [Concomitant]
  15. FISH OIL [Concomitant]
  16. FORTEO [Suspect]
     Dosage: 20 UG, QD
  17. CALCIUM [Concomitant]
  18. VITAMIN K TAB [Concomitant]
     Dosage: UNK, 3/W

REACTIONS (19)
  - SKIN INJURY [None]
  - CAROTID ARTERY STENOSIS [None]
  - VAGINAL HAEMORRHAGE [None]
  - VENOUS INJURY [None]
  - DEPRESSED LEVEL OF CONSCIOUSNESS [None]
  - SPEECH DISORDER [None]
  - FALL [None]
  - FEAR [None]
  - ILL-DEFINED DISORDER [None]
  - VEIN DISORDER [None]
  - URINARY TRACT INFECTION [None]
  - CONTUSION [None]
  - DEATH [None]
  - CAROTID ARTERY OCCLUSION [None]
  - TREMOR [None]
  - VOMITING [None]
  - ASTHENIA [None]
  - MACULAR DEGENERATION [None]
  - HEART RATE IRREGULAR [None]
